FAERS Safety Report 5860380-7 (Version None)
Quarter: 2008Q3

REPORT INFORMATION
  Report Type: 
  Country: None (occurrence: None)
  Receive Date: 20080827
  Receipt Date: 20080817
  Transmission Date: 20090109
  Serious: Yes (Death, Other)
  Sender: FDA-Public Use
  Company Number: PT-AMGEN-UK260194

PATIENT
  Age: 63 Year
  Sex: Male

DRUGS (2)
  1. ARANESP [Suspect]
     Indication: RENAL FAILURE CHRONIC
     Route: 042
     Dates: start: 20050101, end: 20060201
  2. EPOETIN BETA [Suspect]
     Route: 058
     Dates: start: 20060201, end: 20070101

REACTIONS (3)
  - ANTI-ERYTHROPOIETIN ANTIBODY POSITIVE [None]
  - APLASIA PURE RED CELL [None]
  - COMPLETED SUICIDE [None]
